FAERS Safety Report 15056595 (Version 1)
Quarter: 2018Q2

REPORT INFORMATION
  Report Type: Spontaneous
  Country: US (occurrence: US)
  Receive Date: 20180623
  Receipt Date: 20180623
  Transmission Date: 20180711
  Serious: No
  Sender: FDA-Public Use
  Company Number: US-GLENMARK PHARMACEUTICALS-2018GMK033617

PATIENT

DRUGS (1)
  1. MUPIROCIN. [Suspect]
     Active Substance: MUPIROCIN
     Indication: WOUND TREATMENT
     Dosage: UNK
     Route: 045
     Dates: start: 20180313, end: 20180313

REACTIONS (4)
  - Product administered at inappropriate site [Unknown]
  - Epistaxis [Recovered/Resolved]
  - Product use in unapproved indication [Unknown]
  - Lip swelling [Unknown]

NARRATIVE: CASE EVENT DATE: 20180313
